FAERS Safety Report 4632198-4 (Version None)
Quarter: 2005Q2

REPORT INFORMATION
  Report Type: 
  Country: None (occurrence: None)
  Receive Date: 20050331
  Receipt Date: 20040729
  Transmission Date: 20051028
  Serious: Yes (Other)
  Sender: FDA-Public Use
  Company Number: 200413757BCC

PATIENT
  Age: 53 Year
  Sex: Female
  Weight: 76.2043 kg

DRUGS (1)
  1. ALEVE [Suspect]
     Indication: RHEUMATOID ARTHRITIS
     Dosage: 220 MG ONCE ORAL
     Route: 048
     Dates: start: 20040728

REACTIONS (3)
  - ANAPHYLACTOID REACTION [None]
  - NAUSEA [None]
  - PRURITUS [None]
